FAERS Safety Report 16594333 (Version 1)
Quarter: 2019Q3

REPORT INFORMATION
  Report Type: Spontaneous
  Country: CZ (occurrence: CZ)
  Receive Date: 20190718
  Receipt Date: 20190718
  Transmission Date: 20191004
  Serious: Yes (Other)
  Sender: FDA-Public Use
  Company Number: CZ-FRESENIUS KABI-FK201907912

PATIENT

DRUGS (5)
  1. CETUXIMAB. [Suspect]
     Active Substance: CETUXIMAB
     Indication: DISEASE PROGRESSION
  2. LEUCOVORIN CALCIUM (MANUFACTURER UNKNOWN) [Suspect]
     Active Substance: LEUCOVORIN CALCIUM
     Indication: DISEASE PROGRESSION
     Route: 065
  3. IRINOTECAN (MANUFACTURER UNKNOWN) [Suspect]
     Active Substance: IRINOTECAN
     Indication: DISEASE PROGRESSION
     Route: 065
  4. FLUOROURACIL. [Concomitant]
     Active Substance: FLUOROURACIL
     Indication: DISEASE PROGRESSION
     Route: 065
     Dates: start: 201407, end: 201508
  5. FLUOROURACIL. [Suspect]
     Active Substance: FLUOROURACIL
     Indication: DISEASE PROGRESSION

REACTIONS (5)
  - Fatigue [Unknown]
  - Diarrhoea [Unknown]
  - Alopecia [Unknown]
  - Weight decreased [Unknown]
  - Skin toxicity [Unknown]
